FAERS Safety Report 7218849-9 (Version None)
Quarter: 2011Q1

REPORT INFORMATION
  Report Type: 
  Country: None (occurrence: None)
  Receive Date: 20110110
  Receipt Date: 20110103
  Transmission Date: 20110831
  Serious: No
  Sender: FDA-Public Use
  Company Number: US-PFIZER INC-2011001566

PATIENT
  Age: 70 Year
  Sex: Female
  Weight: 79.365 kg

DRUGS (11)
  1. NAPROXEN [Concomitant]
     Dosage: UNK
  2. ZETIA [Concomitant]
     Dosage: UNK
  3. LANTUS [Concomitant]
     Dosage: UNK
  4. POTASSIUM CITRATE [Concomitant]
     Dosage: UNK
  5. TRICOR [Concomitant]
     Dosage: UNK
  6. LOVAZA CAPS [Concomitant]
     Dosage: UNK
  7. BYETTA [Concomitant]
     Dosage: UNK
  8. METFORMIN [Concomitant]
     Dosage: UNK
  9. ADVIL CONGESTION RELIEF [Suspect]
     Indication: SINUS CONGESTION
     Dosage: UNK
     Route: 048
     Dates: end: 20110103
  10. DILTIAZEM [Concomitant]
     Dosage: UNK
  11. LEVOXYL [Concomitant]
     Dosage: UNK

REACTIONS (1)
  - DRUG INEFFECTIVE [None]
